FAERS Safety Report 6361617-0 (Version None)
Quarter: 2009Q3

REPORT INFORMATION
  Report Type: 
  Country: None (occurrence: None)
  Receive Date: 20090918
  Receipt Date: 20090914
  Transmission Date: 20100115
  Serious: Yes (Death, Hospitalization, Other)
  Sender: FDA-Public Use
  Company Number: PHHY2009GB39334

PATIENT

DRUGS (4)
  1. CLOZAPINE [Suspect]
     Indication: SCHIZOPHRENIA
     Dosage: 550 MG/KG
     Route: 048
     Dates: start: 20020101, end: 20050401
  2. CITALOPRAM HYDROBROMIDE [Concomitant]
  3. HALOPERIDOL [Concomitant]
  4. ETHANOL [Concomitant]

REACTIONS (22)
  - AGRANULOCYTOSIS [None]
  - BRONCHOPNEUMONIA [None]
  - CARDIO-RESPIRATORY ARREST [None]
  - EXCORIATION [None]
  - EYELID INJURY [None]
  - GAIT DISTURBANCE [None]
  - GENERAL PHYSICAL HEALTH DETERIORATION [None]
  - HALLUCINATION, VISUAL [None]
  - HEPATORENAL FAILURE [None]
  - JAW FRACTURE [None]
  - LIVER INJURY [None]
  - LOWER RESPIRATORY TRACT INFECTION [None]
  - MICROCYTIC ANAEMIA [None]
  - MOUTH INJURY [None]
  - MUSCLE INJURY [None]
  - NO THERAPEUTIC RESPONSE [None]
  - ORAL INFECTION [None]
  - PULMONARY CONGESTION [None]
  - RHABDOMYOLYSIS [None]
  - SEPSIS [None]
  - VICTIM OF CRIME [None]
  - WOUND INFECTION [None]
